FAERS Safety Report 7793423-4 (Version None)
Quarter: 2011Q4

REPORT INFORMATION
  Report Type: 
  Country: None (occurrence: None)
  Receive Date: 20111003
  Receipt Date: 20110923
  Transmission Date: 20120403
  Serious: Yes (Hospitalization, Other)
  Sender: FDA-Public Use
  Company Number: PHHY2011US83493

PATIENT

DRUGS (1)
  1. LISINOPRIL [Suspect]
     Indication: HYPERTENSION
     Route: 048

REACTIONS (9)
  - ABDOMINAL TENDERNESS [None]
  - VOMITING [None]
  - DIARRHOEA [None]
  - HYPOTENSION [None]
  - FACE OEDEMA [None]
  - ABDOMINAL PAIN [None]
  - WHITE BLOOD CELL COUNT INCREASED [None]
  - SYSTOLIC HYPERTENSION [None]
  - SMALL BOWEL ANGIOEDEMA [None]
